FAERS Safety Report 14563024 (Version 4)
Quarter: 2018Q2

REPORT INFORMATION
  Report Type: Spontaneous
  Country: JP (occurrence: JP)
  Receive Date: 20180222
  Receipt Date: 20180614
  Transmission Date: 20180711
  Serious: Yes (Death, Other)
  Sender: FDA-Public Use
  Company Number: JP-BAYER-2018-031877

PATIENT
  Age: 74 Year
  Sex: Male
  Weight: 64 kg

DRUGS (5)
  1. XOFIGO [Suspect]
     Active Substance: RADIUM RA-223 DICHLORIDE
     Indication: HORMONE-REFRACTORY PROSTATE CANCER
     Dosage: 55 KBQ, ONCE
     Route: 042
     Dates: start: 20171115, end: 20171115
  2. XOFIGO [Suspect]
     Active Substance: RADIUM RA-223 DICHLORIDE
     Indication: METASTASES TO BONE
     Dosage: 55 KBQ, ONCE
     Dates: start: 20171213, end: 20171213
  3. LEUPLIN [Concomitant]
     Active Substance: LEUPROLIDE ACETATE
     Dosage: DAILY DOSE 3.75 MG
     Dates: end: 20180110
  4. DENOSUMAB [Concomitant]
     Active Substance: DENOSUMAB
     Dosage: DAILY DOSE 120 MG
     Dates: end: 20180110
  5. XOFIGO [Suspect]
     Active Substance: RADIUM RA-223 DICHLORIDE
     Indication: HORMONE-REFRACTORY PROSTATE CANCER
     Dosage: UNK, ONCE
     Dates: start: 20180110, end: 20180110

REACTIONS (8)
  - Pancytopenia [Fatal]
  - Decreased appetite [Fatal]
  - Dyspnoea [Fatal]
  - Dysstasia [Fatal]
  - Blood pressure decreased [Fatal]
  - Pyrexia [Fatal]
  - Dyspnoea [Fatal]
  - Depressed level of consciousness [None]

NARRATIVE: CASE EVENT DATE: 20180128
